FAERS Safety Report 17044246 (Version 1)
Quarter: 2019Q4

REPORT INFORMATION
  Report Type: Spontaneous
  Country: JP (occurrence: JP)
  Receive Date: 20191118
  Receipt Date: 20191118
  Transmission Date: 20200122
  Serious: Yes (Death)
  Sender: FDA-Public Use
  Company Number: JP-BAYER-2019-204712

PATIENT
  Age: 55 Year
  Sex: Male

DRUGS (1)
  1. NEXAVAR [Suspect]
     Active Substance: SORAFENIB
     Indication: HEPATOCELLULAR CARCINOMA
     Dosage: UNK
     Route: 048
     Dates: start: 2014, end: 2014

REACTIONS (6)
  - Death [Fatal]
  - Palmar-plantar erythrodysaesthesia syndrome [None]
  - Aspartate aminotransferase abnormal [None]
  - Alanine aminotransferase abnormal [None]
  - Blood bilirubin abnormal [None]
  - White blood cell count abnormal [None]

NARRATIVE: CASE EVENT DATE: 20160225
